FAERS Safety Report 4468217-8 (Version None)
Quarter: 2004Q4

REPORT INFORMATION
  Report Type: 
  Country: None (occurrence: None)
  Receive Date: 20041007
  Receipt Date: 20040928
  Transmission Date: 20050328
  Serious: Yes (Hospitalization)
  Sender: FDA-Public Use
  Company Number: FR-ABBOTT-04P-056-0275201-01

PATIENT
  Sex: Female
  Weight: 87 kg

DRUGS (12)
  1. HUMIRA [Suspect]
     Indication: RHEUMATOID ARTHRITIS
     Route: 058
     Dates: start: 20030318
  2. METHOTREXATE [Concomitant]
     Indication: RHEUMATOID ARTHRITIS
     Route: 048
     Dates: start: 20020201
  3. ACETAMINOPHEN AND CODEINE PHOSPHATE [Concomitant]
     Indication: RHEUMATOID ARTHRITIS
     Route: 048
     Dates: start: 20010101
  4. NAPROXEN SODIUM [Concomitant]
     Indication: RHEUMATOID ARTHRITIS
     Route: 048
     Dates: start: 20020201
  5. PREDNISONE [Concomitant]
     Indication: RHEUMATOID ARTHRITIS
     Route: 048
     Dates: start: 20020201
  6. RIFAMPIN AND ISONIAZID [Concomitant]
     Indication: TUBERCULOSIS PROPHYLAXIS
     Route: 048
     Dates: start: 20030205, end: 20030505
  7. OMEPRAZOLE [Concomitant]
     Indication: PROPHYLAXIS AGAINST GASTROINTESTINAL ULCER
     Route: 048
     Dates: start: 20020201
  8. CAPOZIDE [Concomitant]
     Indication: HYPERTENSION
     Route: 048
     Dates: start: 19880101
  9. FOLIC ACID [Concomitant]
     Indication: RHEUMATOID ARTHRITIS
     Route: 048
     Dates: start: 20020201
  10. TRIAMCINOLONE HEXACETONIDE [Concomitant]
     Indication: SYNOVITIS
     Dates: start: 20030623, end: 20030623
  11. DIPROSPAN [Concomitant]
     Indication: SYNOVITIS
     Dates: start: 20030623, end: 20030623
  12. DIPROSPAN [Concomitant]
     Dates: start: 20030623, end: 20030623

REACTIONS (1)
  - ATRIOVENTRICULAR BLOCK [None]
